FAERS Safety Report 5119962-2 (Version None)
Quarter: 2006Q3

REPORT INFORMATION
  Report Type: 
  Country: None (occurrence: None)
  Receive Date: 20060929
  Receipt Date: 20060914
  Transmission Date: 20061208
  Serious: Yes (Hospitalization)
  Sender: FDA-Public Use
  Company Number: 2006105571

PATIENT
  Age: 61 Year
  Sex: Male
  Weight: 82.3 kg

DRUGS (2)
  1. SUTENT [Suspect]
     Indication: METASTATIC RENAL CELL CARCINOMA
     Dosage: 50 MG (50 MG, 1 IN 1 D), ORAL
     Route: 048
     Dates: start: 20060418
  2. ALLEGRA-D 12 HOUR [Suspect]
     Indication: DRUG USE FOR UNKNOWN INDICATION
     Dosage: (60 MG), ORAL
     Route: 048
     Dates: start: 20060301, end: 20060823

REACTIONS (9)
  - ADRENAL MASS [None]
  - ATELECTASIS [None]
  - ATRIAL FIBRILLATION [None]
  - BRONCHIAL DISORDER [None]
  - HAEMOPTYSIS [None]
  - HEART RATE INCREASED [None]
  - LUNG INFILTRATION [None]
  - MEDIASTINUM NEOPLASM [None]
  - PNEUMONIA [None]
